FAERS Safety Report 15883252 (Version 1)
Quarter: 2019Q1

REPORT INFORMATION
  Report Type: Report from Study
  Country: PK (occurrence: PK)
  Receive Date: 20190129
  Receipt Date: 20190129
  Transmission Date: 20190417
  Serious: Yes (Other)
  Sender: FDA-Public Use
  Company Number: PK-ROCHE-2254958

PATIENT
  Age: 36 Year
  Sex: Male

DRUGS (1)
  1. RANIBIZUMAB. [Suspect]
     Active Substance: RANIBIZUMAB
     Indication: CYSTOID MACULAR OEDEMA
     Dosage: LEFT EYE
     Route: 050

REACTIONS (2)
  - Suspected transmission of an infectious agent via product [Unknown]
  - Endophthalmitis [Unknown]
